FAERS Safety Report 13452855 (Version 1)
Quarter: 2017Q2

REPORT INFORMATION
  Report Type: Spontaneous
  Country: JP (occurrence: JP)
  Receive Date: 20170418
  Receipt Date: 20170418
  Transmission Date: 20170830
  Serious: Yes (Death, Other)
  Sender: FDA-Public Use
  Company Number: JP-MYLANLABS-2017M1023223

PATIENT

DRUGS (9)
  1. ISONIAZID. [Suspect]
     Active Substance: ISONIAZID
     Indication: DISSEMINATED TUBERCULOSIS
     Dosage: 200 MG
     Route: 065
  2. PYRAZINAMIDE. [Suspect]
     Active Substance: PYRAZINAMIDE
     Indication: DISSEMINATED TUBERCULOSIS
     Dosage: 1.2 G
     Route: 065
  3. RIFAMPICIN [Suspect]
     Active Substance: RIFAMPIN
     Indication: DISSEMINATED TUBERCULOSIS
     Dosage: 450MG
     Route: 065
  4. ADALIMUMAB [Suspect]
     Active Substance: ADALIMUMAB
     Indication: SAPHO SYNDROME
     Dosage: BI-WEEKLY
     Route: 016
  5. ETHAMBUTOL [Suspect]
     Active Substance: ETHAMBUTOL HYDROCHLORIDE
     Indication: DISSEMINATED TUBERCULOSIS
     Dosage: 750 MG
     Route: 065
  6. METHYLPREDNISOLONE. [Concomitant]
     Active Substance: METHYLPREDNISOLONE
     Indication: DISSEMINATED TUBERCULOSIS
     Dosage: 500 MG
     Route: 065
  7. PREDNISOLONE. [Interacting]
     Active Substance: PREDNISOLONE
     Indication: DISSEMINATED TUBERCULOSIS
     Dosage: 30 MG
     Route: 065
  8. NOREPINEPHRINE. [Concomitant]
     Active Substance: NOREPINEPHRINE
     Indication: PRODUCT USED FOR UNKNOWN INDICATION
     Dosage: INFUSION RATE OF 0.05-0.2 MICROGKGE-1MINE-1
     Route: 050
  9. RIFAMPICIN [Interacting]
     Active Substance: RIFAMPIN
     Indication: DISSEMINATED TUBERCULOSIS
     Dosage: 450MG
     Route: 065

REACTIONS (8)
  - Acute respiratory distress syndrome [Fatal]
  - Shock [Fatal]
  - Drug interaction [Unknown]
  - Liver injury [Recovering/Resolving]
  - Disseminated intravascular coagulation [Fatal]
  - Paradoxical drug reaction [Fatal]
  - Disseminated tuberculosis [Fatal]
  - Respiratory failure [Fatal]
